FAERS Safety Report 13780249 (Version 1)
Quarter: 2017Q3

REPORT INFORMATION
  Report Type: Spontaneous
  Country: US (occurrence: US)
  Receive Date: 20170724
  Receipt Date: 20170724
  Transmission Date: 20171127
  Serious: No
  Sender: FDA-Public Use
  Company Number: US-TEVA-789353USA

PATIENT
  Age: 70 Year
  Sex: Female
  Weight: 115.32 kg

DRUGS (16)
  1. DILANTIN [Concomitant]
     Active Substance: PHENYTOIN
     Indication: PETIT MAL EPILEPSY
  2. COZAAR [Concomitant]
     Active Substance: LOSARTAN POTASSIUM
     Indication: BLOOD PRESSURE MEASUREMENT
  3. OMEPRAZOLE. [Concomitant]
     Active Substance: OMEPRAZOLE
     Indication: ABDOMINAL DISCOMFORT
  4. ECOTRIN [Concomitant]
     Active Substance: ASPIRIN
     Indication: BLOOD VISCOSITY ABNORMAL
  5. NITROSTAT [Concomitant]
     Active Substance: NITROGLYCERIN
     Indication: MYOCARDIAL INFARCTION
  6. QVAR [Suspect]
     Active Substance: BECLOMETHASONE DIPROPIONATE
     Indication: WHEEZING
     Dosage: ONE PUFF TWICE DAILY
     Dates: start: 20170710
  7. IMDUR [Concomitant]
     Active Substance: ISOSORBIDE MONONITRATE
     Indication: CARDIAC DISORDER
  8. SYNTHROID [Concomitant]
     Active Substance: LEVOTHYROXINE SODIUM
     Indication: HYPOTHYROIDISM
  9. METFORMIN [Concomitant]
     Active Substance: METFORMIN HYDROCHLORIDE
     Indication: DIABETES MELLITUS
  10. MYSOLINE [Concomitant]
     Active Substance: PRIMIDONE
     Indication: PETIT MAL EPILEPSY
  11. VENTOLIN [Concomitant]
     Active Substance: ALBUTEROL SULFATE
     Indication: DYSPNOEA
  12. METOPROLOL. [Concomitant]
     Active Substance: METOPROLOL
     Indication: CARDIAC DISORDER
  13. FUROSEMIDE. [Concomitant]
     Active Substance: FUROSEMIDE
     Indication: PROPHYLAXIS
  14. CRANBERRY EXTRACT [Concomitant]
     Active Substance: CRANBERRY JUICE
     Indication: URINARY TRACT INFECTION
  15. SIMVASTATIN. [Concomitant]
     Active Substance: SIMVASTATIN
     Indication: BLOOD CHOLESTEROL
  16. VITAMIN D3 [Concomitant]
     Active Substance: CHOLECALCIFEROL
     Indication: VITAMIN D DEFICIENCY

REACTIONS (5)
  - Burning sensation [Recovered/Resolved]
  - Chest discomfort [Recovered/Resolved]
  - Discomfort [Recovered/Resolved]
  - Dyspnoea [Not Recovered/Not Resolved]
  - Drug ineffective [Unknown]

NARRATIVE: CASE EVENT DATE: 20170716
